FAERS Safety Report 9394864 (Version 1)
Quarter: 2013Q3

REPORT INFORMATION
  Report Type: Spontaneous
  Country: US (occurrence: US)
  Receive Date: 20130711
  Receipt Date: 20130711
  Transmission Date: 20140515
  Serious: Yes (Other)
  Sender: FDA-Public Use
  Company Number: US-PFIZER INC-2013202745

PATIENT
  Age: 59 Year
  Sex: Female

DRUGS (1)
  1. ADVIL [Suspect]
     Indication: PAIN
     Dosage: UNK, 6X/DAY
     Route: 048
     Dates: start: 20130707, end: 20130709

REACTIONS (3)
  - Coeliac disease [Unknown]
  - Miliaria [Unknown]
  - Pain [Unknown]
